FAERS Safety Report 17982851 (Version 9)
Quarter: 2022Q4

REPORT INFORMATION
  Report Type: Report from Study
  Country: IL (occurrence: IL)
  Receive Date: 20200706
  Receipt Date: 20221017
  Transmission Date: 20230112
  Serious: Yes (Other)
  Sender: FDA-Public Use
  Company Number: IL-ABBVIE-20K-082-3351906-00

PATIENT
  Age: 73 Year
  Sex: Female
  Weight: 72 kg

DRUGS (28)
  1. VENCLEXTA [Suspect]
     Active Substance: VENETOCLAX
     Indication: Chronic lymphocytic leukaemia
     Route: 048
     Dates: start: 20200224, end: 20200423
  2. VENCLEXTA [Suspect]
     Active Substance: VENETOCLAX
     Indication: Chronic lymphocytic leukaemia
     Dosage: DOSE INCREASED PER TITRATION SCHEME
     Route: 048
     Dates: start: 20200422, end: 20200422
  3. VENCLEXTA [Suspect]
     Active Substance: VENETOCLAX
     Indication: Chronic lymphocytic leukaemia
     Dosage: 20 MILLIGRAM
     Route: 048
     Dates: start: 20200426, end: 20200430
  4. VENCLEXTA [Suspect]
     Active Substance: VENETOCLAX
     Indication: Chronic lymphocytic leukaemia
     Dosage: DOSE CHANGE DUE TO OTHER AE NON HEMATOLOGIC
     Route: 048
     Dates: start: 20200426, end: 20200430
  5. VENCLEXTA [Suspect]
     Active Substance: VENETOCLAX
     Indication: Chronic lymphocytic leukaemia
     Dosage: DOSE INCREASE PER TITRATION SCHEME/ RAMP UP
     Route: 048
     Dates: start: 20200512, end: 20200518
  6. VENCLEXTA [Suspect]
     Active Substance: VENETOCLAX
     Indication: Chronic lymphocytic leukaemia
     Dosage: DOSE INCREASE PER TITRATION SCHEME/RAMP UP
     Route: 048
     Dates: start: 20200519, end: 20200523
  7. VENCLEXTA [Suspect]
     Active Substance: VENETOCLAX
     Indication: Chronic lymphocytic leukaemia
     Dosage: DOSE INCREASE PER TITRATION SCHEME
     Route: 048
     Dates: start: 20200524, end: 20210412
  8. GAZYVA [Suspect]
     Active Substance: OBINUTUZUMAB
     Indication: Chronic lymphocytic leukaemia
     Route: 065
     Dates: start: 20200224, end: 20200224
  9. OBINUTUZUMAB [Suspect]
     Active Substance: OBINUTUZUMAB
     Indication: Monoclonal antibody unconjugated therapy
     Dosage: CYCLE 1
     Route: 065
     Dates: start: 20200224, end: 20200224
  10. OBINUTUZUMAB [Suspect]
     Active Substance: OBINUTUZUMAB
     Indication: Monoclonal antibody unconjugated therapy
     Dosage: CYCLE 2
     Route: 065
     Dates: start: 20200303, end: 20200303
  11. OBINUTUZUMAB [Suspect]
     Active Substance: OBINUTUZUMAB
     Indication: Monoclonal antibody unconjugated therapy
     Dosage: CYCLE 3
     Route: 065
     Dates: start: 20200422, end: 20200422
  12. OBINUTUZUMAB [Suspect]
     Active Substance: OBINUTUZUMAB
     Indication: Monoclonal antibody unconjugated therapy
     Dosage: CYCLE 4
     Route: 065
     Dates: start: 20200519, end: 20200519
  13. OBINUTUZUMAB [Suspect]
     Active Substance: OBINUTUZUMAB
     Indication: Monoclonal antibody unconjugated therapy
     Dosage: CYCLE 5
     Route: 065
     Dates: start: 20200616, end: 20200616
  14. OBINUTUZUMAB [Suspect]
     Active Substance: OBINUTUZUMAB
     Indication: Monoclonal antibody unconjugated therapy
     Dosage: CYCLE 5
     Route: 065
     Dates: start: 202007, end: 202007
  15. OBINUTUZUMAB [Suspect]
     Active Substance: OBINUTUZUMAB
     Indication: Monoclonal antibody unconjugated therapy
     Dosage: CYCLE 7
     Route: 065
     Dates: start: 20200811, end: 20200811
  16. ALLOPURINOL [Concomitant]
     Active Substance: ALLOPURINOL
     Indication: Prophylaxis
     Dates: start: 20101002, end: 20210412
  17. FUSID [Concomitant]
     Indication: Oedema peripheral
     Route: 048
     Dates: start: 20150326
  18. SIMVASTATIN [Concomitant]
     Active Substance: SIMVASTATIN
     Indication: Hypertension
     Dates: start: 20081002
  19. LEVOTHYROXINE [Concomitant]
     Active Substance: LEVOTHYROXINE
     Indication: Hypothyroidism
     Dates: start: 20090629
  20. AMLODIPINE [Concomitant]
     Active Substance: AMLODIPINE BESYLATE
     Indication: Hypertension
     Dates: start: 20180213, end: 20220214
  21. BISOPROLOL FUMARATE [Concomitant]
     Active Substance: BISOPROLOL FUMARATE
     Indication: Hypertension
     Dates: start: 20141124
  22. COUMADIN [Concomitant]
     Active Substance: WARFARIN SODIUM
     Indication: Heart valve replacement
     Dates: start: 20081229
  23. OTRIVIN [Concomitant]
     Active Substance: XYLOMETAZOLINE
     Indication: Nasal congestion
     Dates: start: 20131002
  24. AUGMENTIN [Concomitant]
     Active Substance: AMOXICILLIN\CLAVULANATE POTASSIUM
     Indication: Joint injury
     Dates: start: 20200308, end: 20200322
  25. SYNTHOMYCINE [Concomitant]
     Indication: Joint injury
     Dates: start: 20200315, end: 20200315
  26. CIPRODEX [Concomitant]
     Active Substance: CIPROFLOXACIN HYDROCHLORIDE\DEXAMETHASONE
     Indication: Joint injury
     Dates: start: 20200315, end: 20200315
  27. COVID-19 VACCINE [Concomitant]
     Indication: COVID-19 prophylaxis
     Route: 030
     Dates: start: 20201231, end: 20201231
  28. COVID-19 VACCINE [Concomitant]
     Indication: COVID-19 prophylaxis
     Route: 030
     Dates: start: 20210114, end: 20210114

REACTIONS (11)
  - Cardiac failure [Recovered/Resolved]
  - Pulmonary congestion [Recovered/Resolved]
  - Dyspnoea [Recovered/Resolved]
  - Gait disturbance [Recovered/Resolved]
  - Dysuria [Recovered/Resolved]
  - Pyrexia [Recovered/Resolved]
  - Anaemia [Not Recovered/Not Resolved]
  - Oedema peripheral [Recovered/Resolved]
  - Oedema peripheral [Recovered/Resolved]
  - Renal impairment [Not Recovered/Not Resolved]
  - Oedema [Recovered/Resolved]

NARRATIVE: CASE EVENT DATE: 20200101
